FAERS Safety Report 9908449 (Version 1)
Quarter: 2014Q1

REPORT INFORMATION
  Report Type: Spontaneous
  Country: US (occurrence: None)
  Receive Date: 20140214
  Receipt Date: 20140214
  Transmission Date: 20141002
  Serious: Yes (Hospitalization)
  Sender: FDA-Public Use
  Company Number: None

PATIENT
  Age: 83 None
  Sex: Male
  Weight: 81 kg

DRUGS (1)
  1. HEPARIN [Suspect]
     Indication: ATRIAL FIBRILLATION
     Dosage: IVD, RECENT
     Route: 041

REACTIONS (1)
  - Heparin-induced thrombocytopenia [None]
